FAERS Safety Report 6956553-2 (Version None)
Quarter: 2010Q3

REPORT INFORMATION
  Report Type: 
  Country: None (occurrence: None)
  Receive Date: 20100826
  Receipt Date: 20100819
  Transmission Date: 20110219
  Serious: Yes (Disabling)
  Sender: FDA-Public Use
  Company Number: OSCN-NO-1002S-0054

PATIENT
  Age: 58 Year
  Sex: Male
  Weight: 69.5 kg

DRUGS (6)
  1. GADOLINIUM (UNSPECIFIED) [Suspect]
     Indication: PRODUCT USED FOR UNKNOWN INDICATION
     Dosage: SINGLE DOSE, I.V.
     Route: 042
     Dates: start: 20030311, end: 20030311
  2. RAMIPRIL [Concomitant]
  3. ALFACALCIDOL (ETALPHA) [Concomitant]
  4. SOTALOL [Concomitant]
  5. POLYSTYRENE SULFONATE (RESONIUM) [Concomitant]
  6. CALCIUM CARBONATE [Concomitant]

REACTIONS (4)
  - ACTIVITIES OF DAILY LIVING IMPAIRED [None]
  - GAIT DISTURBANCE [None]
  - INSOMNIA [None]
  - NEPHROGENIC SYSTEMIC FIBROSIS [None]
